FAERS Safety Report 15904798 (Version 1)
Quarter: 2019Q1

REPORT INFORMATION
  Report Type: Spontaneous
  Country: TN (occurrence: TN)
  Receive Date: 20190204
  Receipt Date: 20190204
  Transmission Date: 20190417
  Serious: Yes (Death)
  Sender: FDA-Public Use
  Company Number: TN-SA-2019SA027983

PATIENT
  Age: 70 Year
  Sex: Female

DRUGS (3)
  1. LASILIX [FUROSEMIDE] [Concomitant]
     Active Substance: FUROSEMIDE
  2. XYZALL [Suspect]
     Active Substance: LEVOCETIRIZINE DIHYDROCHLORIDE
     Indication: SKIN DISORDER
     Dosage: 5 MG
     Dates: start: 20181115, end: 20181121
  3. DIGOXIN. [Concomitant]
     Active Substance: DIGOXIN

REACTIONS (2)
  - Death [Fatal]
  - Swelling [Unknown]

NARRATIVE: CASE EVENT DATE: 201811
